FAERS Safety Report 24626088 (Version 1)
Quarter: 2024Q4

REPORT INFORMATION
  Report Type: Spontaneous
  Country: US (occurrence: US)
  Receive Date: 20241115
  Receipt Date: 20241115
  Transmission Date: 20250115
  Serious: Yes (Hospitalization)
  Sender: LUNDBECK
  Company Number: US-LUNDBECK-DKLU4006850

PATIENT

DRUGS (1)
  1. VIGABATRIN [Suspect]
     Active Substance: VIGABATRIN
     Indication: Infantile spasms
     Dosage: 1900 MILLIGRAM

REACTIONS (3)
  - Autonomic nervous system imbalance [Unknown]
  - Encephalopathy [Unknown]
  - Magnetic resonance imaging head abnormal [Unknown]
